FAERS Safety Report 10888411 (Version 24)
Quarter: 2016Q4

REPORT INFORMATION
  Report Type: Report from Study
  Country: None (occurrence: BE)
  Receive Date: 20150305
  Receipt Date: 20161202
  Transmission Date: 20170206
  Serious: Yes (Hospitalization)
  Sender: FDA-Public Use
  Company Number: BE-ABBVIE-13P-013-1133871-00

PATIENT
  Age: 69 Year
  Sex: Male

DRUGS (50)
  1. DUODOPA [Suspect]
     Active Substance: CARBIDOPA\LEVODOPA
     Dosage: AM = 7 ML, CD = 4.3 ML/H DURING 16H, ED = 3 ML
     Route: 050
     Dates: start: 20141030, end: 20141113
  2. DUODOPA [Suspect]
     Active Substance: CARBIDOPA\LEVODOPA
     Dosage: AM = 7 ML, CD = 4.8 ML/H DURING 16H, ED = 3 ML
     Route: 050
     Dates: start: 20141118, end: 20141215
  3. DUODOPA [Suspect]
     Active Substance: CARBIDOPA\LEVODOPA
     Dosage: MD=4.5ML, CD=4.3ML/H (AM)/4.6ML (PM)FOR 16HRS, ND=3ML/H FOR 8HRS AND ED=3ML
     Route: 050
     Dates: start: 20150312, end: 20150325
  4. DUODOPA [Suspect]
     Active Substance: CARBIDOPA\LEVODOPA
     Dosage: AM= 6 ML; CD= 5.4 ML/H DURING 16 HRS; ND= 3 ML/H DURING 8 HRS;ED= 3 ML
     Route: 050
     Dates: start: 20160531, end: 20160607
  5. SEROQUEL [Concomitant]
     Active Substance: QUETIAPINE FUMARATE
     Indication: PRODUCT USED FOR UNKNOWN INDICATION
  6. AZILECT [Concomitant]
     Active Substance: RASAGILINE MESYLATE
     Indication: PRODUCT USED FOR UNKNOWN INDICATION
     Dates: end: 20160531
  7. DUODOPA [Suspect]
     Active Substance: CARBIDOPA\LEVODOPA
     Dosage: AM=6ML, CONT=4ML/H AM;4.6ML/H PM IN 16H, EXTRA=3ML
     Route: 050
     Dates: start: 20130807, end: 20130813
  8. DUODOPA [Suspect]
     Active Substance: CARBIDOPA\LEVODOPA
     Dosage: AM DOSE= 6ML, CONTIN DOSE= 4ML/H DURING 16HRS, EXTRA DOSE= 3ML
     Route: 050
     Dates: start: 20140228, end: 20140818
  9. DUODOPA [Suspect]
     Active Substance: CARBIDOPA\LEVODOPA
     Dosage: AM=4.5ML; CD=4.6ML/HR (AM) -5.1ML (PM)/HR DURING 16 HRS;ED=3ML; ND=3ML/HR DURING 8HRS
     Route: 050
     Dates: start: 20150923, end: 20151013
  10. BURINEX [Concomitant]
     Active Substance: BUMETANIDE
     Indication: PRODUCT USED FOR UNKNOWN INDICATION
  11. PROLOPA HBS 125 [Concomitant]
     Indication: PRODUCT USED FOR UNKNOWN INDICATION
     Dosage: 125; AT 11PM
  12. PROLOPA HBS [Concomitant]
     Active Substance: BENSERAZIDE\LEVODOPA
     Indication: PRODUCT USED FOR UNKNOWN INDICATION
     Dosage: WHEN SWITCHING OFF DUODOPA PUMP
  13. PRAMIPEXOL [Concomitant]
     Active Substance: PRAMIPEXOLE
     Indication: PRODUCT USED FOR UNKNOWN INDICATION
     Dates: end: 20141010
  14. REMERGON [Concomitant]
     Active Substance: MIRTAZAPINE
     Indication: PRODUCT USED FOR UNKNOWN INDICATION
  15. DUODOPA [Suspect]
     Active Substance: CARBIDOPA\LEVODOPA
     Dosage: DOSAGE CONTINUOUSLY MONITORED AND ADJUSTED
     Route: 050
     Dates: start: 20120719, end: 20130718
  16. DUODOPA [Suspect]
     Active Substance: CARBIDOPA\LEVODOPA
     Dosage: AM 7ML, CD 4ML/H (AM) AND 4.4ML/H (PM) IN 16HRS IN TOTAL, ED 3ML
     Route: 050
     Dates: start: 20140912, end: 20141010
  17. DUODOPA [Suspect]
     Active Substance: CARBIDOPA\LEVODOPA
     Dosage: AM 5 ML, CD 4 ML/H (AM)  4.2 ML/H (PM) IN 16H TOTAL, ED 3 ML, ND 3.2 ML/H IN 8H
     Route: 050
     Dates: start: 20141022, end: 20141026
  18. DUODOPA [Suspect]
     Active Substance: CARBIDOPA\LEVODOPA
     Dosage: AM = 4.5 ML, CD = 4.3 ML/H DURING 16H, ED = 3 ML, ND = 3 ML/H
     Route: 050
     Dates: start: 20150302, end: 20150312
  19. DUODOPA [Suspect]
     Active Substance: CARBIDOPA\LEVODOPA
     Dosage: AM: 4.5 ML, CD: 4.4 ML/H AM,/4.6 ML/H PM 16 H, ED: 3 ML, ND: 3 ML/H DURING 8 H
     Route: 050
     Dates: start: 20150520, end: 20150722
  20. DUODOPA [Suspect]
     Active Substance: CARBIDOPA\LEVODOPA
     Dosage: AM6ML; CD4.6 ML/HR (AM) + 5.1ML/HR (PM) DURING 16HRS;ED3ML; ND3ML DURING 8HRS
     Route: 050
     Dates: start: 20151013, end: 20151022
  21. DUODOPA [Suspect]
     Active Substance: CARBIDOPA\LEVODOPA
     Dosage: AM= 6 ML; CD= 4.3 ML/H DURING 16 HRS; ED= 3 ML
     Route: 050
     Dates: start: 20160719, end: 20160818
  22. DUODOPA [Suspect]
     Active Substance: CARBIDOPA\LEVODOPA
     Dosage: AM= 4.5 ML?CD= 4.8 ML/H DURING 16 HRS; ED= 3 ML
     Route: 050
     Dates: start: 20161125
  23. COVERSYL [Concomitant]
     Active Substance: PERINDOPRIL
     Indication: PRODUCT USED FOR UNKNOWN INDICATION
  24. DUODOPA [Suspect]
     Active Substance: CARBIDOPA\LEVODOPA
     Dosage: AM = 7 ML, CD = 4.5 ML/H DURING 16H, ED = 3 ML
     Route: 050
     Dates: start: 20141113, end: 20141118
  25. DUODOPA [Suspect]
     Active Substance: CARBIDOPA\LEVODOPA
     Dosage: AM6ML;CD5.4ML/HR (AM),4.9ML/HR (PM);ED3ML;ND3ML/HR DURING 8HRS
     Route: 050
     Dates: start: 20151130, end: 201603
  26. DUODOPA [Suspect]
     Active Substance: CARBIDOPA\LEVODOPA
     Dosage: AM= 6 ML; CD= 4.3 ML/H DURING 16 HRS; ND = 2.5 ML/H DURING 8 HRS; ED= 3 ML
     Route: 050
     Dates: start: 20160607, end: 20160719
  27. DUODOPA [Suspect]
     Active Substance: CARBIDOPA\LEVODOPA
     Dosage: AM=3.5ML, CD=4.3ML/HR DURING 16HRS, ED=3ML, ND=1.5ML/HR DURING 8HRS
     Route: 050
     Dates: start: 20160818, end: 20161123
  28. DUODOPA [Suspect]
     Active Substance: CARBIDOPA\LEVODOPA
     Dosage: AM=3.5ML?CD=4.8ML/HR DURING 16HRS?ED =3ML?ND=0.4ML/HR DURING 8HRS
     Route: 050
     Dates: start: 20161123, end: 201611
  29. DUODOPA [Suspect]
     Active Substance: CARBIDOPA\LEVODOPA
     Indication: PARKINSON^S DISEASE
     Dosage: AM=7ML, CONTIN=2.9ML/H DURING 16HRS, EXTRA=2ML
     Route: 050
     Dates: start: 20120716, end: 20120719
  30. DUODOPA [Suspect]
     Active Substance: CARBIDOPA\LEVODOPA
     Dosage: AM = 7 ML, CD = 4 ML/H DURING 16H, ED = 3 ML
     Route: 050
     Dates: start: 20141026, end: 20141030
  31. DUODOPA [Suspect]
     Active Substance: CARBIDOPA\LEVODOPA
     Dosage: AM = 6 ML, CD = 4.5 ML/H DURING 16H, ED = 3 ML, ND = 4 ML/H DURING 8H
     Route: 050
     Dates: start: 20141215, end: 20150302
  32. DUODOPA [Suspect]
     Active Substance: CARBIDOPA\LEVODOPA
     Dosage: AM=6ML, CD=4.9ML(AM), 5.4ML/H (PM), 4.9ML/H (EVENING) FOR 16 HRS; ED=3ML, ND=3ML FOR 8 HRS
     Route: 050
     Dates: start: 20151103, end: 20151106
  33. DUODOPA [Suspect]
     Active Substance: CARBIDOPA\LEVODOPA
     Dosage: AM:6ML,CD:4.7ML/H(AM),5.4ML/H(PM),4.9ML/H(EVENING)FOR 16HRS; ED:3ML,ND:3ML/H FOR 8HRS
     Route: 050
     Dates: start: 20151106, end: 20151130
  34. DUODOPA [Suspect]
     Active Substance: CARBIDOPA\LEVODOPA
     Dosage: AM=6 ML; CD=5.7 ML/H DURING 16 HRS; ED=3 ML, ND: 3 ML/HR DURING 8 H
     Route: 050
     Dates: start: 20160517, end: 20160531
  35. DUODOPA [Suspect]
     Active Substance: CARBIDOPA\LEVODOPA
     Dosage: AM 6ML, CONTIN= 4ML (AM) AND 4.4ML (PM) IN 16HRS IN TOTAL, ED 3ML
     Route: 050
     Dates: start: 20131112, end: 20140228
  36. PROLOPA 250 [Concomitant]
     Indication: PRODUCT USED FOR UNKNOWN INDICATION
     Dosage: 250; WHEN FREEZING
  37. PROLOPA 250 [Concomitant]
     Dosage: DOSE AND FREQUENCY SEE NARRATIVE
  38. PRAMIPEXOL [Concomitant]
     Active Substance: PRAMIPEXOLE
     Dates: end: 20160531
  39. DUODOPA [Suspect]
     Active Substance: CARBIDOPA\LEVODOPA
     Dosage: AM 6 ML, CD  4 ML/H (AM) AND 4.2 ML/H (PM) IN 16H IN TOTAL, ED 3 ML
     Route: 050
     Dates: start: 20141010, end: 20141022
  40. DUODOPA [Suspect]
     Active Substance: CARBIDOPA\LEVODOPA
     Dosage: AM DOSE=4.5ML, CD=4.5ML/H (AM):4.8ML/H FOR 16HRS, ND=3ML/H FOR 8HRS AND ED=3ML
     Route: 050
     Dates: start: 20150325, end: 20150520
  41. DUODOPA [Suspect]
     Active Substance: CARBIDOPA\LEVODOPA
     Route: 050
     Dates: start: 20150722, end: 20150914
  42. DUODOPA [Suspect]
     Active Substance: CARBIDOPA\LEVODOPA
     Dosage: AM DOSE=6ML, CD=4.9ML(AM)/4.6ML/H (PM) AND ED=3ML, ND=3ML
     Route: 050
     Dates: start: 20151022, end: 20151103
  43. SERLAIN [Concomitant]
     Active Substance: SERTRALINE HYDROCHLORIDE
     Indication: PRODUCT USED FOR UNKNOWN INDICATION
  44. PANTOMED [Concomitant]
     Active Substance: DEXPANTHENOL
     Indication: PRODUCT USED FOR UNKNOWN INDICATION
  45. DUODOPA [Suspect]
     Active Substance: CARBIDOPA\LEVODOPA
     Dosage: AM=6ML, CONT=4ML/H AM;4.3ML/H PM IN 16H, EXTRA=3ML
     Route: 050
     Dates: start: 20130718, end: 20130807
  46. DUODOPA [Suspect]
     Active Substance: CARBIDOPA\LEVODOPA
     Dosage: AM DOSE 6ML, CD 4ML/H (AM)+ 4.8ML/H (PM) DURING 16HRS IN TOTAL, ED 3ML
     Route: 050
     Dates: start: 20130813, end: 20131112
  47. DUODOPA [Suspect]
     Active Substance: CARBIDOPA\LEVODOPA
     Dosage: AM 6ML, CD 4ML/H (AM) AND 4.4ML/H (PM) IN 16HRS IN TOTAL, ED 3ML
     Route: 050
     Dates: start: 20140818, end: 20140912
  48. DUODOPA [Suspect]
     Active Substance: CARBIDOPA\LEVODOPA
     Dosage: AM 4.5ML; CD 4.6ML/HR(AM) -4.8ML(PM)/HR DURING 16 HRS; ED 3ML
     Route: 050
     Dates: start: 20150914, end: 20150923
  49. DUODOPA [Suspect]
     Active Substance: CARBIDOPA\LEVODOPA
     Dosage: AM=6 ML; CD=5.4 ML/H DURING 16 HRS; ED=3 ML
     Route: 050
     Dates: start: 201603, end: 20160517
  50. LORAMET [Concomitant]
     Active Substance: LORMETAZEPAM
     Indication: PRODUCT USED FOR UNKNOWN INDICATION

REACTIONS (26)
  - Drug effect incomplete [Unknown]
  - Confusional state [Unknown]
  - Tremor [Unknown]
  - Mobility decreased [Unknown]
  - Muscle rigidity [Unknown]
  - Parkinson^s disease [Unknown]
  - Device issue [Unknown]
  - Unevaluable event [Unknown]
  - Freezing phenomenon [Not Recovered/Not Resolved]
  - Dyskinesia [Not Recovered/Not Resolved]
  - Urinary tract infection [Unknown]
  - Gait disturbance [Unknown]
  - Freezing phenomenon [Not Recovered/Not Resolved]
  - On and off phenomenon [Not Recovered/Not Resolved]
  - Dyskinesia [Not Recovered/Not Resolved]
  - Fall [Unknown]
  - Freezing phenomenon [Unknown]
  - Keloid scar [Not Recovered/Not Resolved]
  - Insomnia [Unknown]
  - Dyskinesia [Unknown]
  - Underdose [Unknown]
  - Neuralgia [Unknown]
  - Aggression [Unknown]
  - Dystonia [Unknown]
  - Disinhibition [Unknown]
  - Polyneuropathy [Not Recovered/Not Resolved]

NARRATIVE: CASE EVENT DATE: 20160104
